FAERS Safety Report 18999093 (Version 1)
Quarter: 2021Q1

REPORT INFORMATION
  Report Type: Spontaneous
  Country: GB (occurrence: GB)
  Receive Date: 20210311
  Receipt Date: 20210311
  Transmission Date: 20210420
  Serious: Yes (Other)
  Sender: FDA-Public Use
  Company Number: GB-TEVA-2021-GB-1886730

PATIENT
  Age: 65 Year
  Sex: Female
  Weight: 67.12 kg

DRUGS (1)
  1. DOXYCYCLINE HYCLATE. [Suspect]
     Active Substance: DOXYCYCLINE HYCLATE
     Indication: LOWER RESPIRATORY TRACT INFECTION
     Dosage: 2 CAPSULES FIRST DAY
     Route: 048
     Dates: start: 20180618, end: 20180622

REACTIONS (11)
  - Photophobia [Unknown]
  - Hyperhidrosis [Unknown]
  - Muscle spasms [Unknown]
  - Vomiting [Not Recovered/Not Resolved]
  - Abdominal pain upper [Unknown]
  - Asthenia [Not Recovered/Not Resolved]
  - Haematochezia [Recovered/Resolved]
  - Diarrhoea [Unknown]
  - Pyrexia [Unknown]
  - Feeling of body temperature change [Unknown]
  - Skin burning sensation [Unknown]

NARRATIVE: CASE EVENT DATE: 20180622
